FAERS Safety Report 23768651 (Version 1)
Quarter: 2024Q2

REPORT INFORMATION
  Report Type: Spontaneous
  Country: FR (occurrence: FR)
  Receive Date: 20240422
  Receipt Date: 20240422
  Transmission Date: 20240716
  Serious: Yes (Other)
  Sender: FDA-Public Use
  Company Number: FR-Accord-416521

PATIENT
  Age: 53 Year
  Sex: Female

DRUGS (2)
  1. PEMBROLIZUMAB [Suspect]
     Active Substance: PEMBROLIZUMAB
     Indication: Bronchial carcinoma
     Dates: end: 20240311
  2. PEMETREXED DISODIUM [Suspect]
     Active Substance: PEMETREXED DISODIUM
     Indication: Bronchial carcinoma
     Dosage: 700 MILLIGRAM
     Dates: end: 20240311

REACTIONS (2)
  - Thrombocytopenia [Unknown]
  - Neutropenia [Unknown]
